FAERS Safety Report 25214450 (Version 1)
Quarter: 2025Q2

REPORT INFORMATION
  Report Type: Spontaneous
  Country: US (occurrence: None)
  Receive Date: 20250417
  Receipt Date: 20250417
  Transmission Date: 20250716
  Serious: No
  Sender: FDA-CTU
  Company Number: None

PATIENT
  Age: 44 Year
  Sex: Female

DRUGS (1)
  1. ACETYLCYSTEINE [Suspect]
     Active Substance: ACETYLCYSTEINE
     Indication: Toxicity to various agents
     Route: 042
     Dates: start: 20250101, end: 20250101

REACTIONS (3)
  - Diarrhoea [None]
  - Flushing [None]
  - Vomiting [None]

NARRATIVE: CASE EVENT DATE: 20250101
